FAERS Safety Report 8453673-0 (Version None)
Quarter: 2012Q2

REPORT INFORMATION
  Report Type: 
  Country: None (occurrence: None)
  Receive Date: 20120620
  Receipt Date: 20120615
  Transmission Date: 20120825
  Serious: Yes (Hospitalization, Other)
  Sender: FDA-Public Use
  Company Number: US-PFIZER INC-2012004004

PATIENT
  Sex: Female
  Weight: 67.03 kg

DRUGS (12)
  1. VITAMIN D [Concomitant]
     Dosage: 600 MG, ONCE A DAY
  2. NICOTINE [Concomitant]
     Dosage: UNK
  3. CALCIUM [Concomitant]
     Dosage: UNK
  4. DRISDOL [Concomitant]
     Dosage: 50000 IU, UNK
  5. PATADAY [Concomitant]
     Indication: EYE PRURITUS
     Dosage: UNK
  6. SYNTHROID [Concomitant]
     Indication: THYROID DISORDER
     Dosage: UNK
  7. FLOVENT [Concomitant]
     Indication: ASTHMA
     Dosage: UNK, ONCE A DAY
  8. LIPITOR [Suspect]
     Indication: BLOOD CHOLESTEROL INCREASED
     Dosage: 20 MG, ONCE A DAY
     Route: 048
  9. NORVASC [Suspect]
     Indication: HYPERTENSION
     Dosage: 10 MG, ONCE A DAY
     Route: 048
  10. EFFEXOR XR [Suspect]
     Indication: DEPRESSION
     Dosage: 150 MG, ONCE A DAY
     Route: 048
  11. VENTOLIN [Concomitant]
     Indication: BRONCHITIS
     Dosage: UNK
  12. ASPIRIN [Concomitant]
     Indication: CARDIAC DISORDER
     Dosage: 81 MG, ONCE A DAY

REACTIONS (10)
  - DYSPNOEA [None]
  - HYPERTENSION [None]
  - FEELING ABNORMAL [None]
  - CARDIAC DISCOMFORT [None]
  - HEAD DISCOMFORT [None]
  - ANGINA PECTORIS [None]
  - BODY HEIGHT DECREASED [None]
  - CORONARY ARTERY OCCLUSION [None]
  - INFLUENZA [None]
  - READING DISORDER [None]
